FAERS Safety Report 8446862-2 (Version None)
Quarter: 2012Q2

REPORT INFORMATION
  Report Type: 
  Country: None (occurrence: None)
  Receive Date: 20120613
  Receipt Date: 20120613
  Transmission Date: 20120825
  Serious: Yes (Hospitalization)
  Sender: FDA-Public Use
  Company Number: None

PATIENT
  Sex: Male
  Weight: 94.8018 kg

DRUGS (14)
  1. BEVACIZUMAB 15 MG/KG [Suspect]
     Indication: PROSTATE CANCER
     Dosage: 1425 MG IVPB
     Route: 042
     Dates: start: 20120601
  2. RAMIPRIL [Concomitant]
  3. ASPIRIN [Concomitant]
  4. VICODIN [Concomitant]
  5. COMPAZINE [Concomitant]
  6. ZOFRAN [Concomitant]
  7. TAXOTERE [Suspect]
     Indication: PROSTATE CANCER
     Dosage: 160 MG IVPB
     Route: 042
     Dates: start: 20120601
  8. RAD001 2.5 MG [Suspect]
     Indication: PROSTATE CANCER
     Dosage: RAD001 2.5 MG PO
     Route: 048
     Dates: start: 20120602, end: 20120609
  9. METFORMIN HCL [Concomitant]
  10. LUPRON [Concomitant]
  11. IBUPROFEN (ADVIL) [Concomitant]
  12. XGEVA [Concomitant]
  13. DECADRON [Concomitant]
  14. MMX SOLUTION [Concomitant]

REACTIONS (6)
  - NEUTROPENIA [None]
  - RASH PRURITIC [None]
  - ODYNOPHAGIA [None]
  - DEHYDRATION [None]
  - FATIGUE [None]
  - WHITE BLOOD CELL COUNT DECREASED [None]
